FAERS Safety Report 5200966-6 (Version None)
Quarter: 2007Q1

REPORT INFORMATION
  Report Type: 
  Country: None (occurrence: None)
  Receive Date: 20070103
  Receipt Date: 20061215
  Transmission Date: 20070707
  Serious: Yes (Hospitalization)
  Sender: FDA-Public Use
  Company Number: DSA_29045_2006

PATIENT
  Age: 77 Year
  Sex: Male
  Weight: 64 kg

DRUGS (6)
  1. RENIVACE [Suspect]
     Indication: HYPERTENSION
     Dosage: 5 MG QD PO
     Route: 048
     Dates: start: 20061111, end: 20061115
  2. BUFFERIN /00009201/ [Suspect]
     Indication: THROMBOSIS PROPHYLAXIS
     Dosage: 81 MG BID PO
     Route: 048
     Dates: start: 20061110
  3. EUGLUCON [Suspect]
     Indication: DIABETES MELLITUS NON-INSULIN-DEPENDENT
     Dosage: 1.25 MG BID PO
     Route: 048
     Dates: start: 20061111, end: 20061120
  4. OMEPRAL [Suspect]
     Indication: GASTRIC ULCER
     Dosage: 20 MG QD PO
     Route: 048
     Dates: start: 20061111, end: 20061120
  5. PANALDINE [Suspect]
     Indication: THROMBOSIS PROPHYLAXIS
     Dosage: 100 MG BID PO
     Route: 048
     Dates: start: 20061111, end: 20061120
  6. DIOVAN /01319601/ [Suspect]
     Indication: HYPERTENSION
     Dosage: 80 MG QD PO
     Route: 048
     Dates: start: 20061118, end: 20061120

REACTIONS (9)
  - ACUTE MYOCARDIAL INFARCTION [None]
  - ALANINE AMINOTRANSFERASE INCREASED [None]
  - ASPARTATE AMINOTRANSFERASE INCREASED [None]
  - BLOOD CREATINE PHOSPHOKINASE INCREASED [None]
  - BLOOD IMMUNOGLOBULIN E INCREASED [None]
  - BLOOD LACTATE DEHYDROGENASE INCREASED [None]
  - C-REACTIVE PROTEIN INCREASED [None]
  - INTERSTITIAL LUNG DISEASE [None]
  - LYMPHOCYTE STIMULATION TEST POSITIVE [None]
